FAERS Safety Report 9866426 (Version 5)
Quarter: 2019Q1

REPORT INFORMATION
  Report Type: Report from Study
  Country: DE (occurrence: DE)
  Receive Date: 20140204
  Receipt Date: 20190221
  Transmission Date: 20190418
  Serious: Yes (Death, Hospitalization)
  Sender: FDA-Public Use
  Company Number: DE-ROCHE-1017177

PATIENT
  Age: 45 Year
  Sex: Female

DRUGS (1)
  1. RITUXIMAB. [Suspect]
     Active Substance: RITUXIMAB
     Indication: RHEUMATOID ARTHRITIS
     Route: 042
     Dates: start: 20090515

REACTIONS (5)
  - Device related infection [Recovered/Resolved]
  - Urinary tract infection [Recovered/Resolved]
  - Sepsis [Fatal]
  - Skin ulcer [Unknown]
  - Device loosening [Unknown]

NARRATIVE: CASE EVENT DATE: 200912
